FAERS Safety Report 13746501 (Version 3)
Quarter: 2018Q1

REPORT INFORMATION
  Report Type: Spontaneous
  Country: US (occurrence: US)
  Receive Date: 20170712
  Receipt Date: 20180302
  Transmission Date: 20180508
  Serious: No
  Sender: FDA-Public Use
  Company Number: US-ASTRAZENECA-2017SE70206

PATIENT
  Age: 685 Month
  Sex: Female

DRUGS (1)
  1. BYDUREON [Suspect]
     Active Substance: EXENATIDE
     Indication: TYPE 2 DIABETES MELLITUS
     Dosage: 2.0MG UNKNOWN
     Route: 065
     Dates: start: 2016

REACTIONS (8)
  - Injection site haemorrhage [Unknown]
  - Device leakage [Unknown]
  - Feeling abnormal [Unknown]
  - Ear infection [Unknown]
  - Wrong technique in product usage process [Unknown]
  - Muscle fatigue [Unknown]
  - Swelling face [Unknown]
  - Product quality issue [Unknown]

NARRATIVE: CASE EVENT DATE: 201802
